FAERS Safety Report 22299475 (Version 1)
Quarter: 2023Q2

REPORT INFORMATION
  Report Type: Spontaneous
  Country: CN (occurrence: CN)
  Receive Date: 20230509
  Receipt Date: 20230509
  Transmission Date: 20230722
  Serious: Yes (Hospitalization, Other)
  Sender: FDA-Public Use
  Company Number: CN-BAYER-2023A061660

PATIENT
  Age: 54 Year
  Sex: Male

DRUGS (2)
  1. AVELOX [Suspect]
     Active Substance: MOXIFLOXACIN HYDROCHLORIDE
     Indication: Superior mesenteric artery dissection
     Dosage: 0.4 G, QD
     Route: 048
     Dates: start: 20230327
  2. AVELOX [Suspect]
     Active Substance: MOXIFLOXACIN HYDROCHLORIDE
     Indication: Inflammation

REACTIONS (3)
  - Drug eruption [Recovering/Resolving]
  - Skin exfoliation [None]
  - Off label use [None]

NARRATIVE: CASE EVENT DATE: 20230327
